FAERS Safety Report 11522686 (Version 2)
Quarter: 2015Q3

REPORT INFORMATION
  Report Type: Spontaneous
  Country: CA (occurrence: CA)
  Receive Date: 20150918
  Receipt Date: 20150922
  Transmission Date: 20151125
  Serious: Yes (Other)
  Sender: FDA-Public Use
  Company Number: CA-LEO PHARMA-236914

PATIENT
  Sex: Female

DRUGS (1)
  1. PICATO [Suspect]
     Active Substance: INGENOL MEBUTATE
     Indication: PRODUCT USED FOR UNKNOWN INDICATION
     Dates: start: 2015, end: 2015

REACTIONS (3)
  - Eyelid ptosis [Recovering/Resolving]
  - Vision blurred [Not Recovered/Not Resolved]
  - Pupillary disorder [Not Recovered/Not Resolved]

NARRATIVE: CASE EVENT DATE: 2015
